FAERS Safety Report 7427907-5 (Version None)
Quarter: 2011Q2

REPORT INFORMATION
  Report Type: 
  Country: None (occurrence: None)
  Receive Date: 20110421
  Receipt Date: 20110414
  Transmission Date: 20111010
  Serious: Yes (Hospitalization)
  Sender: FDA-Public Use
  Company Number: AT-TEVA-276897ISR

PATIENT
  Age: 82 Year
  Sex: Female
  Weight: 60 kg

DRUGS (2)
  1. LISINOPRIL AND HYDROCHLOROTHIAZIDE (ACECOMB) [Suspect]
     Indication: HYPERTENSION
     Route: 048
     Dates: start: 20040101, end: 20110329
  2. FENTANYL [Suspect]
     Indication: PAIN
     Dosage: 12 ?G/H
     Route: 062
     Dates: start: 20110322, end: 20110329

REACTIONS (1)
  - SWOLLEN TONGUE [None]
